FAERS Safety Report 25182239 (Version 1)
Quarter: 2025Q2

REPORT INFORMATION
  Report Type: Spontaneous
  Country: US (occurrence: US)
  Receive Date: 20250410
  Receipt Date: 20250410
  Transmission Date: 20250717
  Serious: No
  Sender: KINIKSA PHARMACEUTICALS
  Company Number: US-Kiniksa Pharmaceuticals Ltd.-2024KPU000543

PATIENT
  Sex: Male

DRUGS (1)
  1. ARCALYST [Suspect]
     Active Substance: RILONACEPT
     Indication: Pericarditis

REACTIONS (5)
  - Injection site discharge [Unknown]
  - Incorrect dose administered [Unknown]
  - Injection site mass [Unknown]
  - Injection site rash [Unknown]
  - Injection site pain [Unknown]
